FAERS Safety Report 12590342 (Version 2)
Quarter: 2016Q3

REPORT INFORMATION
  Report Type: Report from Study
  Country: GB (occurrence: GB)
  Receive Date: 20160725
  Receipt Date: 20160829
  Transmission Date: 20161109
  Serious: Yes (Hospitalization)
  Sender: FDA-Public Use
  Company Number: GB-ABBVIE-16K-167-1681495-00

PATIENT
  Age: 35 Year
  Sex: Female

DRUGS (1)
  1. HUMIRA [Suspect]
     Active Substance: ADALIMUMAB
     Indication: PRODUCT USED FOR UNKNOWN INDICATION
     Route: 058
     Dates: start: 20030605

REACTIONS (5)
  - Inflammatory marker increased [Recovered/Resolved]
  - Musculoskeletal pain [Unknown]
  - Anal abscess [Unknown]
  - Muscle swelling [Recovered/Resolved]
  - Pilonidal cyst [Recovered/Resolved]

NARRATIVE: CASE EVENT DATE: 20160626
